FAERS Safety Report 20326897 (Version 2)
Quarter: 2022Q1

REPORT INFORMATION
  Report Type: Spontaneous
  Country: US (occurrence: None)
  Receive Date: 20220112
  Receipt Date: 20220301
  Transmission Date: 20220423
  Serious: Yes (Life-Threatening, Hospitalization, Other)
  Sender: FDA-Public Use
  Company Number: US-Hikma Pharmaceuticals USA Inc.-US-H14001-21-05674

PATIENT
  Age: 21 Year
  Sex: Male
  Weight: 44 kg

DRUGS (12)
  1. CYTARABINE [Suspect]
     Active Substance: CYTARABINE
     Indication: Acute lymphocytic leukaemia
     Route: 058
     Dates: start: 20210702
  2. DEXAMETHASONE [Suspect]
     Active Substance: DEXAMETHASONE
     Indication: Acute lymphocytic leukaemia
     Route: 048
     Dates: start: 20211119
  3. DOXORUBICIN [Suspect]
     Active Substance: DOXORUBICIN
     Indication: Acute lymphocytic leukaemia
     Route: 042
     Dates: start: 20211119
  4. LEUCOVORIN [Suspect]
     Active Substance: LEUCOVORIN
     Indication: Acute lymphocytic leukaemia
     Dosage: UNKNOWN
     Route: 042
  5. METHOTREXATE [Suspect]
     Active Substance: METHOTREXATE
     Indication: Acute lymphocytic leukaemia
     Route: 037
     Dates: start: 20210702
  6. METHOTREXATE [Suspect]
     Active Substance: METHOTREXATE
     Route: 042
     Dates: start: 20210910
  7. MERCAPTOPURINE [Suspect]
     Active Substance: MERCAPTOPURINE
     Indication: Acute lymphocytic leukaemia
     Route: 048
     Dates: start: 20210702
  8. CYCLOPHOSPHAMIDE [Suspect]
     Active Substance: CYCLOPHOSPHAMIDE
     Indication: Acute lymphocytic leukaemia
     Route: 042
     Dates: start: 20210702
  9. RUXOLITINIB [Suspect]
     Active Substance: RUXOLITINIB
     Indication: Acute lymphocytic leukaemia
     Route: 048
     Dates: start: 20210702
  10. PEGASPARGASE [Suspect]
     Active Substance: PEGASPARGASE
     Indication: Acute lymphocytic leukaemia
     Route: 042
     Dates: start: 20210716
  11. VINCRISTINE [Suspect]
     Active Substance: VINCRISTINE
     Indication: Acute lymphocytic leukaemia
     Route: 042
     Dates: start: 20210716
  12. THIOGUANINE [Suspect]
     Active Substance: THIOGUANINE
     Indication: Acute lymphocytic leukaemia
     Route: 048
     Dates: start: 20210716

REACTIONS (19)
  - Pancreatitis [Not Recovered/Not Resolved]
  - Febrile neutropenia [Recovered/Resolved]
  - Abdominal pain [Unknown]
  - Decreased appetite [Unknown]
  - Chest pain [Unknown]
  - Pain [Unknown]
  - Lipase increased [Unknown]
  - Nausea [Not Recovered/Not Resolved]
  - Pleural effusion [Unknown]
  - Blood creatinine increased [Unknown]
  - Blood urea increased [Unknown]
  - Constipation [Unknown]
  - Hypoxia [Recovered/Resolved]
  - Dehydration [Unknown]
  - Delirium [Recovered/Resolved]
  - Vomiting [Recovered/Resolved]
  - Feeding intolerance [Recovering/Resolving]
  - Back pain [Unknown]
  - Malaise [Unknown]

NARRATIVE: CASE EVENT DATE: 20211208
